FAERS Safety Report 20693329 (Version 26)
Quarter: 2025Q4

REPORT INFORMATION
  Report Type: Spontaneous
  Country: CA (occurrence: CA)
  Receive Date: 20220410
  Receipt Date: 20251110
  Transmission Date: 20260118
  Serious: Yes (Other)
  Sender: CELLTRION
  Company Number: CA-CELLTRION INC.-2021CA018717

PATIENT

DRUGS (52)
  1. INFLIXIMAB [Suspect]
     Active Substance: INFLIXIMAB
     Indication: Crohn^s disease
     Dosage: 10 MG/KG
     Route: 042
  2. INFLIXIMAB [Suspect]
     Active Substance: INFLIXIMAB
     Dosage: 740 MG
     Route: 042
  3. INFLIXIMAB [Suspect]
     Active Substance: INFLIXIMAB
     Dosage: 10 MG/KG
     Route: 042
  4. INFLIXIMAB [Suspect]
     Active Substance: INFLIXIMAB
     Dosage: 10 MG/KG
     Route: 042
  5. INFLIXIMAB [Suspect]
     Active Substance: INFLIXIMAB
     Dosage: 10 MG/KG
     Route: 042
  6. INFLIXIMAB [Suspect]
     Active Substance: INFLIXIMAB
     Dosage: 10 MG/KG
     Route: 042
  7. INFLIXIMAB [Suspect]
     Active Substance: INFLIXIMAB
     Dosage: 10 MG/KG
     Route: 042
  8. INFLIXIMAB [Suspect]
     Active Substance: INFLIXIMAB
     Dosage: 10 MG/KG
     Route: 042
  9. INFLIXIMAB [Suspect]
     Active Substance: INFLIXIMAB
     Dosage: 10 MG/KG
     Route: 042
  10. INFLIXIMAB [Suspect]
     Active Substance: INFLIXIMAB
     Dosage: 10 MG/KG
     Route: 042
  11. INFLIXIMAB [Suspect]
     Active Substance: INFLIXIMAB
     Dosage: 720 MG
     Route: 042
  12. INFLIXIMAB [Suspect]
     Active Substance: INFLIXIMAB
     Dosage: 10 MG/KG
     Route: 042
  13. INFLIXIMAB [Suspect]
     Active Substance: INFLIXIMAB
     Dosage: 10 MG/KG
     Route: 042
  14. INFLIXIMAB [Suspect]
     Active Substance: INFLIXIMAB
     Dosage: 10 MG/KG
     Route: 042
  15. INFLIXIMAB [Suspect]
     Active Substance: INFLIXIMAB
     Dosage: 10 MG/KG
     Route: 042
  16. INFLIXIMAB [Suspect]
     Active Substance: INFLIXIMAB
     Dosage: 10 MG/KG
     Route: 042
  17. INFLIXIMAB [Suspect]
     Active Substance: INFLIXIMAB
     Dosage: 10 MG/KG
     Route: 042
  18. INFLIXIMAB [Suspect]
     Active Substance: INFLIXIMAB
     Dosage: 10 MG/KG
     Route: 042
  19. INFLIXIMAB [Suspect]
     Active Substance: INFLIXIMAB
     Dosage: 700 MG
     Route: 042
  20. INFLIXIMAB [Suspect]
     Active Substance: INFLIXIMAB
     Dosage: 700 MG
     Route: 042
  21. INFLIXIMAB [Suspect]
     Active Substance: INFLIXIMAB
     Dosage: 720 MG
     Route: 042
  22. INFLIXIMAB [Suspect]
     Active Substance: INFLIXIMAB
     Dosage: 720 MG
     Route: 042
  23. INFLIXIMAB [Suspect]
     Active Substance: INFLIXIMAB
     Dosage: 720 MG
     Route: 042
  24. INFLIXIMAB [Suspect]
     Active Substance: INFLIXIMAB
     Dosage: 740 MG
     Route: 042
  25. INFLIXIMAB [Suspect]
     Active Substance: INFLIXIMAB
     Dosage: 750 MG
     Route: 042
  26. INFLIXIMAB [Suspect]
     Active Substance: INFLIXIMAB
     Dosage: 10 MG/KG
     Route: 042
  27. INFLECTRA [Suspect]
     Active Substance: INFLIXIMAB-DYYB
     Indication: Crohn^s disease
     Dosage: 10 MG/KG, EVERY 5 WEEK
     Route: 042
     Dates: start: 20220224
  28. INFLECTRA [Suspect]
     Active Substance: INFLIXIMAB-DYYB
     Dosage: 10 MG/KG, EVERY 5 WEEK
     Route: 042
     Dates: start: 20220331
  29. INFLECTRA [Suspect]
     Active Substance: INFLIXIMAB-DYYB
     Dosage: 10 MG/KG, EVERY 5 WEEK
     Route: 042
     Dates: start: 20220518
  30. INFLECTRA [Suspect]
     Active Substance: INFLIXIMAB-DYYB
     Dosage: 10 MG/KG, EVERY 5 WEEK
     Route: 042
     Dates: start: 20220727, end: 20220727
  31. INFLECTRA [Suspect]
     Active Substance: INFLIXIMAB-DYYB
     Dosage: 10 MG/KG, EVERY 5 WEEK
     Route: 042
     Dates: start: 20220830
  32. INFLECTRA [Suspect]
     Active Substance: INFLIXIMAB-DYYB
     Dosage: 10 MG/KG, AFTER 7 WEEKS (EVERY 5 WEEK)
     Route: 042
     Dates: start: 20221018
  33. INFLECTRA [Suspect]
     Active Substance: INFLIXIMAB-DYYB
     Dosage: 10 MG/KG, EVERY 5 WEEK
     Route: 042
     Dates: start: 20221122
  34. INFLECTRA [Suspect]
     Active Substance: INFLIXIMAB-DYYB
     Dosage: 10 MG/KG, EVERY 5 WEEK
     Route: 042
     Dates: start: 20230125
  35. INFLECTRA [Suspect]
     Active Substance: INFLIXIMAB-DYYB
     Dosage: 10 MG/KG, EVERY 5 WEEK
     Route: 042
     Dates: start: 20230125
  36. INFLECTRA [Suspect]
     Active Substance: INFLIXIMAB-DYYB
     Dosage: 10 MG/KG, EVERY 5 WEEK
     Route: 042
     Dates: start: 20230125
  37. INFLECTRA [Suspect]
     Active Substance: INFLIXIMAB-DYYB
     Dosage: 720 MG, AFTER 7 WEEK 1 DAY (EVERY 5 WEEKS)
     Route: 042
     Dates: start: 20230316
  38. INFLECTRA [Suspect]
     Active Substance: INFLIXIMAB-DYYB
     Dosage: 10 MG/KG, EVERY 5 WEEK
     Route: 042
     Dates: start: 20230525
  39. INFLECTRA [Suspect]
     Active Substance: INFLIXIMAB-DYYB
     Dosage: 10 MG/KG (710MG), AFTER 16 WEEKS 4 DAYS (EVERY 5 WEEK)
     Route: 042
     Dates: start: 20230918
  40. INFLECTRA [Suspect]
     Active Substance: INFLIXIMAB-DYYB
     Dosage: 10 MG/KG (710MG), AFTER 16 WEEKS 4 DAYS (EVERY 5 WEEK)
     Route: 042
     Dates: start: 20230918
  41. INFLECTRA [Suspect]
     Active Substance: INFLIXIMAB-DYYB
     Dosage: 10 MG/KG (710MG), AFTER 16 WEEKS 4 DAYS (EVERY 5 WEEK)
     Route: 042
     Dates: start: 20230918
  42. INFLECTRA [Suspect]
     Active Substance: INFLIXIMAB-DYYB
     Dosage: 10 MG/KG, EVERY 5 WEEK (DOSAGE ADMINISTERED: 710MG)
     Route: 042
     Dates: start: 20231030
  43. INFLECTRA [Suspect]
     Active Substance: INFLIXIMAB-DYYB
     Dosage: 10 MG/KG (730MG), AFTER 10 WEEKS AND 3 DAYS (EVERY 5 WEEKS)
     Route: 042
     Dates: start: 20240111
  44. INFLECTRA [Suspect]
     Active Substance: INFLIXIMAB-DYYB
     Dosage: 10 MG/KG, EVERY 5 WEEK
     Route: 042
     Dates: start: 20240814
  45. INFLECTRA [Suspect]
     Active Substance: INFLIXIMAB-DYYB
     Dosage: 700 MG (10 MG/KG), EVERY 5 WEEK
     Route: 042
     Dates: start: 20240918
  46. INFLECTRA [Suspect]
     Active Substance: INFLIXIMAB-DYYB
     Dosage: 700 MG (10 MG/KG), EVERY 5 WEEKS
     Route: 042
     Dates: start: 20241023
  47. INFLECTRA [Suspect]
     Active Substance: INFLIXIMAB-DYYB
     Dosage: 720 MG (10MG/KG), EVERY 5 WEEK
     Route: 042
     Dates: start: 20241127
  48. INFLECTRA [Suspect]
     Active Substance: INFLIXIMAB-DYYB
     Dosage: 720 MG (10MG/KG), EVERY 5 WEEK
     Route: 042
     Dates: start: 20241127
  49. INFLECTRA [Suspect]
     Active Substance: INFLIXIMAB-DYYB
     Dosage: 720 MG (10MG/KG), EVERY 5 WEEK
     Route: 042
     Dates: start: 20241127
  50. INFLECTRA [Suspect]
     Active Substance: INFLIXIMAB-DYYB
     Dosage: 740 MG Q5 WEEKS (10MG/KG)
     Route: 042
     Dates: start: 20250102
  51. INFLECTRA [Suspect]
     Active Substance: INFLIXIMAB-DYYB
     Dosage: 750 MG,5 WEEKS(10MG/KG,EVERY 5 WEEKS)
     Route: 042
     Dates: start: 20250205
  52. INFLECTRA [Suspect]
     Active Substance: INFLIXIMAB-DYYB
     Dosage: 740 MG, EVERY 5 WEEKS(10MG/KG,EVERY 5 WEEKS)
     Route: 042
     Dates: start: 20250312

REACTIONS (25)
  - Abdominal discomfort [Not Recovered/Not Resolved]
  - Blepharitis [Not Recovered/Not Resolved]
  - Eye discharge [Not Recovered/Not Resolved]
  - Ocular hyperaemia [Not Recovered/Not Resolved]
  - Retching [Not Recovered/Not Resolved]
  - Sleep disorder [Not Recovered/Not Resolved]
  - Uveitis [Not Recovered/Not Resolved]
  - Vomiting [Not Recovered/Not Resolved]
  - Weight increased [Not Recovered/Not Resolved]
  - Condition aggravated [Not Recovered/Not Resolved]
  - Knee operation [Not Recovered/Not Resolved]
  - Wound dehiscence [Not Recovered/Not Resolved]
  - Abdominal pain upper [Not Recovered/Not Resolved]
  - Dyspepsia [Not Recovered/Not Resolved]
  - Eye infection [Not Recovered/Not Resolved]
  - Fungal infection [Not Recovered/Not Resolved]
  - Insomnia [Not Recovered/Not Resolved]
  - Pain [Not Recovered/Not Resolved]
  - Psoriasis [Not Recovered/Not Resolved]
  - Off label use [Not Recovered/Not Resolved]
  - Off label use [Not Recovered/Not Resolved]
  - Intentional product use issue [Not Recovered/Not Resolved]
  - Inappropriate schedule of product administration [Not Recovered/Not Resolved]
  - Intentional product use issue [Unknown]
  - Overdose [Unknown]

NARRATIVE: CASE EVENT DATE: 20220101
